FAERS Safety Report 9200214 (Version 1)
Quarter: 2013Q1

REPORT INFORMATION
  Report Type: Spontaneous
  Country: US (occurrence: US)
  Receive Date: 20130329
  Receipt Date: 20130329
  Transmission Date: 20140127
  Serious: Yes (Hospitalization)
  Sender: FDA-Public Use
  Company Number: US-009507513-1303USA013909

PATIENT
  Age: 1 Day
  Sex: Female

DRUGS (1)
  1. PRINIVIL [Suspect]
     Indication: HYPERTENSION
     Dosage: UNK
     Route: 064

REACTIONS (3)
  - Adverse event [Unknown]
  - Hypotension [Unknown]
  - Foetal exposure during pregnancy [Unknown]
